FAERS Safety Report 24012711 (Version 3)
Quarter: 2024Q3

REPORT INFORMATION
  Report Type: Spontaneous
  Country: US (occurrence: US)
  Receive Date: 20240626
  Receipt Date: 20240716
  Transmission Date: 20241016
  Serious: Yes (Other)
  Sender: ABBVIE
  Company Number: US-ABBVIE-5809138

PATIENT
  Sex: Female
  Weight: 61.688 kg

DRUGS (5)
  1. CREON [Suspect]
     Active Substance: PANCRELIPASE AMYLASE\PANCRELIPASE LIPASE\PANCRELIPASE PROTEASE
     Indication: Pancreatic failure
     Dosage: 24000 LIPASE UNIT, 2 CAPSULES ORAL WITH MEALS, 1. CAPSULE ORAL WITH FAT CONTAINING SNACKS;?AVERAG...
     Route: 048
     Dates: start: 20231122
  2. LEVOCETIRIZINE [Concomitant]
     Active Substance: LEVOCETIRIZINE
     Indication: Product used for unknown indication
     Dosage: ONE TABLET ONCE A DAY.
     Route: 048
     Dates: start: 20240602, end: 20240702
  3. NITROFURANTOIN MONOHYDRATE MACROCRYSTALS [Concomitant]
     Active Substance: NITROFURANTOIN\NITROFURANTOIN MONOHYDRATE
     Indication: Product used for unknown indication
     Dosage: 1 CAPSULE TWICE A DAY
     Route: 048
     Dates: start: 20230623, end: 20230629
  4. ENTRESTO [Concomitant]
     Active Substance: SACUBITRIL\VALSARTAN
     Indication: Product used for unknown indication
     Dosage: 97- 103MG, 1 TABLET TWICE A DAY.
     Route: 048
     Dates: start: 20220526
  5. TRELEGY ELLIPTA [Concomitant]
     Active Substance: FLUTICASONE FUROATE\UMECLIDINIUM BROMIDE\VILANTEROL TRIFENATATE
     Indication: Product used for unknown indication
     Dosage: 200MCG, 62.5MCG 25MCG, 1 PUFF DAILY
     Route: 055
     Dates: start: 20210715

REACTIONS (7)
  - Focal nodular hyperplasia [Unknown]
  - Drug ineffective [Unknown]
  - Functional gastrointestinal disorder [Unknown]
  - Nausea [Recovered/Resolved]
  - Diarrhoea [Recovered/Resolved]
  - Abdominal discomfort [Recovered/Resolved]
  - Umbilical hernia [Unknown]

NARRATIVE: CASE EVENT DATE: 20230101
